FAERS Safety Report 15640887 (Version 6)
Quarter: 2019Q3

REPORT INFORMATION
  Report Type: Report from Study
  Country: US (occurrence: US)
  Receive Date: 20181120
  Receipt Date: 20190726
  Transmission Date: 20191004
  Serious: Yes (Hospitalization)
  Sender: FDA-Public Use
  Company Number: US-ACTELION-A-NJ2018-182007

PATIENT
  Age: 84 Year
  Sex: Female

DRUGS (1)
  1. OPSUMIT [Suspect]
     Active Substance: MACITENTAN
     Indication: PULMONARY ARTERIAL HYPERTENSION
     Dosage: 10 MG, QD
     Route: 048
     Dates: start: 20160909, end: 20190610

REACTIONS (8)
  - Intensive care unit acquired weakness [Recovered/Resolved]
  - Dyspnoea [Unknown]
  - Localised infection [Recovered/Resolved]
  - Mitral valve repair [Recovered/Resolved]
  - Knee operation [Recovered/Resolved]
  - Aortic valve repair [Recovered/Resolved]
  - Device related infection [Unknown]
  - Pneumonia [Recovered/Resolved]

NARRATIVE: CASE EVENT DATE: 20181107
